FAERS Safety Report 12114012 (Version 8)
Quarter: 2021Q1

REPORT INFORMATION
  Report Type: Spontaneous
  Country: US (occurrence: US)
  Receive Date: 20160225
  Receipt Date: 20210309
  Transmission Date: 20210419
  Serious: Yes (Other)
  Sender: FDA-Public Use
  Company Number: US-PFIZER INC-2016102107

PATIENT
  Age: 64 Year
  Sex: Female

DRUGS (1)
  1. PRISTIQ EXTENDED?RELEASE [Suspect]
     Active Substance: DESVENLAFAXINE SUCCINATE
     Indication: MAJOR DEPRESSION
     Dosage: 100 MG, DAILY
     Route: 048
     Dates: start: 2018

REACTIONS (5)
  - Panic reaction [Unknown]
  - Insomnia [Unknown]
  - Crying [Unknown]
  - Suicidal ideation [Unknown]
  - Malaise [Unknown]
